FAERS Safety Report 16520043 (Version 1)
Quarter: 2019Q3

REPORT INFORMATION
  Report Type: Spontaneous
  Country: GB (occurrence: GB)
  Receive Date: 20190702
  Receipt Date: 20190702
  Transmission Date: 20191004
  Serious: Yes (Disabling)
  Sender: FDA-Public Use
  Company Number: GB-MYLANLABS-2019M1061346

PATIENT
  Age: 52 Year
  Sex: Male
  Weight: 122 kg

DRUGS (10)
  1. OMEPRAZOLE. [Concomitant]
     Active Substance: OMEPRAZOLE
     Indication: GASTRIC PH DECREASED
     Dosage: 2 DOSAGE FORM, QD
     Dates: start: 20180531
  2. SALBUTAMOL [Concomitant]
     Active Substance: ALBUTEROL
     Dosage: 2 DOSAGE FORM, PRN
     Route: 055
     Dates: start: 20180903
  3. DOXAZOSIN [Suspect]
     Active Substance: DOXAZOSIN MESYLATE
     Indication: HYPERTENSION
     Dosage: 1 MILLIGRAM, QD
     Dates: start: 20181217
  4. ATORVASTATIN [Concomitant]
     Active Substance: ATORVASTATIN
     Indication: HYPERCHOLESTEROLAEMIA
     Dosage: 1 DOSAGE FORM, QD
     Dates: start: 20181003
  5. CLENIL MODULITE [Concomitant]
     Active Substance: BECLOMETHASONE DIPROPIONATE
     Dosage: PUFFS
     Route: 055
     Dates: start: 20180531
  6. AMLODIPINE [Concomitant]
     Active Substance: AMLODIPINE BESYLATE
     Indication: HYPERTENSION
     Dosage: MORNING
     Dates: start: 20180806
  7. BISOPROLOL [Concomitant]
     Active Substance: BISOPROLOL
     Dosage: 1 DOSAGE FORM, QD
     Dates: start: 20180702
  8. RAMIPRIL. [Concomitant]
     Active Substance: RAMIPRIL
     Indication: HYPERTENSION
     Dosage: MORNING.
     Dates: start: 20181003
  9. NITROMIN                           /00003201/ [Concomitant]
     Dosage: PUFF
     Route: 060
     Dates: start: 20160701
  10. ACETYLSALICYLIC ACID [Concomitant]
     Active Substance: ASPIRIN
     Indication: ISCHAEMIC HEART DISEASE PROPHYLAXIS
     Dosage: 1 DOSAGE FORM, QD
     Dates: start: 20181003

REACTIONS (4)
  - Chest pain [Recovered/Resolved]
  - Liver function test increased [Unknown]
  - Chest X-ray abnormal [Unknown]
  - Hypoaesthesia [Recovered/Resolved]
